FAERS Safety Report 25597592 (Version 4)
Quarter: 2025Q3

REPORT INFORMATION
  Report Type: Spontaneous
  Country: EU (occurrence: EU)
  Receive Date: 20250723
  Receipt Date: 20250910
  Transmission Date: 20251021
  Serious: Yes (Hospitalization)
  Sender: MYLAN
  Company Number: EU-SANDOZ-SDZ2025DE045824

PATIENT
  Sex: Male

DRUGS (60)
  1. CANDESARTAN [Suspect]
     Active Substance: CANDESARTAN
     Indication: Product used for unknown indication
  2. CANDESARTAN [Suspect]
     Active Substance: CANDESARTAN
     Route: 065
  3. CANDESARTAN [Suspect]
     Active Substance: CANDESARTAN
     Route: 065
  4. CANDESARTAN [Suspect]
     Active Substance: CANDESARTAN
  5. CLOPIDOGREL [Suspect]
     Active Substance: CLOPIDOGREL BISULFATE
     Indication: Product used for unknown indication
  6. CLOPIDOGREL [Suspect]
     Active Substance: CLOPIDOGREL BISULFATE
  7. CLOPIDOGREL [Suspect]
     Active Substance: CLOPIDOGREL BISULFATE
     Route: 065
  8. CLOPIDOGREL [Suspect]
     Active Substance: CLOPIDOGREL BISULFATE
     Route: 065
  9. CLOPIDOGREL [Suspect]
     Active Substance: CLOPIDOGREL BISULFATE
  10. CLOPIDOGREL [Suspect]
     Active Substance: CLOPIDOGREL BISULFATE
  11. CLOPIDOGREL [Suspect]
     Active Substance: CLOPIDOGREL BISULFATE
     Route: 065
  12. CLOPIDOGREL [Suspect]
     Active Substance: CLOPIDOGREL BISULFATE
     Route: 065
  13. EZETIMIBE [Suspect]
     Active Substance: EZETIMIBE
     Indication: Product used for unknown indication
  14. EZETIMIBE [Suspect]
     Active Substance: EZETIMIBE
  15. EZETIMIBE [Suspect]
     Active Substance: EZETIMIBE
     Route: 065
  16. EZETIMIBE [Suspect]
     Active Substance: EZETIMIBE
     Route: 065
  17. EZETIMIBE [Suspect]
     Active Substance: EZETIMIBE
  18. EZETIMIBE [Suspect]
     Active Substance: EZETIMIBE
  19. EZETIMIBE [Suspect]
     Active Substance: EZETIMIBE
     Route: 065
  20. EZETIMIBE [Suspect]
     Active Substance: EZETIMIBE
     Route: 065
  21. ESOMEPRAZOLE [Suspect]
     Active Substance: ESOMEPRAZOLE
     Indication: Product used for unknown indication
  22. ESOMEPRAZOLE [Suspect]
     Active Substance: ESOMEPRAZOLE
     Route: 065
  23. ESOMEPRAZOLE [Suspect]
     Active Substance: ESOMEPRAZOLE
     Route: 065
  24. ESOMEPRAZOLE [Suspect]
     Active Substance: ESOMEPRAZOLE
  25. NEBIVOLOL [Suspect]
     Active Substance: NEBIVOLOL
     Indication: Product used for unknown indication
  26. NEBIVOLOL [Suspect]
     Active Substance: NEBIVOLOL
  27. NEBIVOLOL [Suspect]
     Active Substance: NEBIVOLOL
     Route: 065
  28. NEBIVOLOL [Suspect]
     Active Substance: NEBIVOLOL
     Route: 065
  29. NEBIVOLOL [Suspect]
     Active Substance: NEBIVOLOL
  30. NEBIVOLOL [Suspect]
     Active Substance: NEBIVOLOL
  31. NEBIVOLOL [Suspect]
     Active Substance: NEBIVOLOL
     Route: 065
  32. NEBIVOLOL [Suspect]
     Active Substance: NEBIVOLOL
     Route: 065
  33. ROSUVASTATIN [Suspect]
     Active Substance: ROSUVASTATIN
     Indication: Product used for unknown indication
  34. ROSUVASTATIN [Suspect]
     Active Substance: ROSUVASTATIN
     Route: 065
  35. ROSUVASTATIN [Suspect]
     Active Substance: ROSUVASTATIN
     Route: 065
  36. ROSUVASTATIN [Suspect]
     Active Substance: ROSUVASTATIN
  37. INDAPAMIDE [Suspect]
     Active Substance: INDAPAMIDE
     Indication: Product used for unknown indication
  38. INDAPAMIDE [Suspect]
     Active Substance: INDAPAMIDE
  39. INDAPAMIDE [Suspect]
     Active Substance: INDAPAMIDE
     Route: 065
  40. INDAPAMIDE [Suspect]
     Active Substance: INDAPAMIDE
     Route: 065
  41. INDAPAMIDE [Suspect]
     Active Substance: INDAPAMIDE
  42. INDAPAMIDE [Suspect]
     Active Substance: INDAPAMIDE
  43. INDAPAMIDE [Suspect]
     Active Substance: INDAPAMIDE
     Route: 065
  44. INDAPAMIDE [Suspect]
     Active Substance: INDAPAMIDE
     Route: 065
  45. COSENTYX [Suspect]
     Active Substance: SECUKINUMAB
     Indication: Product used for unknown indication
     Dates: start: 20210706
  46. COSENTYX [Suspect]
     Active Substance: SECUKINUMAB
     Dates: start: 20210706
  47. COSENTYX [Suspect]
     Active Substance: SECUKINUMAB
     Route: 065
     Dates: start: 20210706
  48. COSENTYX [Suspect]
     Active Substance: SECUKINUMAB
     Route: 065
     Dates: start: 20210706
  49. COSENTYX [Suspect]
     Active Substance: SECUKINUMAB
  50. COSENTYX [Suspect]
     Active Substance: SECUKINUMAB
  51. COSENTYX [Suspect]
     Active Substance: SECUKINUMAB
     Route: 065
  52. COSENTYX [Suspect]
     Active Substance: SECUKINUMAB
     Route: 065
  53. ROSUVASTATIN [Suspect]
     Active Substance: ROSUVASTATIN
     Indication: Product used for unknown indication
  54. ROSUVASTATIN [Suspect]
     Active Substance: ROSUVASTATIN
     Route: 065
  55. ROSUVASTATIN [Suspect]
     Active Substance: ROSUVASTATIN
     Route: 065
  56. ROSUVASTATIN [Suspect]
     Active Substance: ROSUVASTATIN
  57. BUDESONIDE\FORMOTEROL [Suspect]
     Active Substance: BUDESONIDE\FORMOTEROL
     Indication: Product used for unknown indication
  58. BUDESONIDE\FORMOTEROL [Suspect]
     Active Substance: BUDESONIDE\FORMOTEROL
     Route: 065
  59. BUDESONIDE\FORMOTEROL [Suspect]
     Active Substance: BUDESONIDE\FORMOTEROL
     Route: 065
  60. BUDESONIDE\FORMOTEROL [Suspect]
     Active Substance: BUDESONIDE\FORMOTEROL

REACTIONS (1)
  - Spinal osteoarthritis [Recovered/Resolved]

NARRATIVE: CASE EVENT DATE: 20250211
